FAERS Safety Report 21791711 (Version 1)
Quarter: 2022Q4

REPORT INFORMATION
  Report Type: Other
  Country: JP (occurrence: JP)
  Receive Date: 20221229
  Receipt Date: 20221229
  Transmission Date: 20230112
  Serious: Yes (Hospitalization)
  Sender: FDA-Public Use
  Company Number: JP-CHUGAI-2022051823

PATIENT
  Age: 73 Year
  Sex: Female
  Weight: 47 kg

DRUGS (1)
  1. ENTRECTINIB [Suspect]
     Active Substance: ENTRECTINIB
     Indication: Non-small cell lung cancer
     Dosage: 600 MILLIGRAM, QD
     Route: 048
     Dates: start: 20210820, end: 20210823

REACTIONS (1)
  - Skin disorder [Recovered/Resolved]

NARRATIVE: CASE EVENT DATE: 20210823
